FAERS Safety Report 13097066 (Version 1)
Quarter: 2017Q1

REPORT INFORMATION
  Report Type: Spontaneous
  Country: US (occurrence: US)
  Receive Date: 20170106
  Receipt Date: 20170106
  Transmission Date: 20170428
  Serious: Yes (Other)
  Sender: FDA-Public Use
  Company Number: None

PATIENT
  Age: 72 Year
  Sex: Female
  Weight: 67.5 kg

DRUGS (24)
  1. K1/2 [Concomitant]
  2. ZN [Concomitant]
  3. ZEAXANTHIN LYCOPENE [Concomitant]
  4. CURCUMIN [Concomitant]
     Active Substance: CURCUMIN
  5. STINGING NETTLE ROOT [Concomitant]
  6. E [Concomitant]
  7. BORAGE OIL [Concomitant]
     Active Substance: BORAGE OIL
  8. EXTENDED CORE MULTI VIT [Concomitant]
  9. VITAMIN B12 [Concomitant]
     Active Substance: CYANOCOBALAMIN
  10. TAURINE [Concomitant]
     Active Substance: TAURINE
  11. VITAMINS [Concomitant]
     Active Substance: VITAMINS
  12. HESPERIDIN [Concomitant]
     Active Substance: HESPERIDIN
  13. HAWTHORN [Concomitant]
     Active Substance: CRATAEGUS LAEVIGATA FRUIT
  14. QUERCETIN [Concomitant]
     Active Substance: QUERCETIN
  15. MILK THISTLE [Concomitant]
     Active Substance: MILK THISTLE
  16. N-ACETYL CYSTEINE [Concomitant]
  17. COD LIVER OIL [Concomitant]
     Active Substance: COD LIVER OIL
  18. SE [Concomitant]
  19. LEVOFLOXACIN. [Suspect]
     Active Substance: LEVOFLOXACIN
     Indication: UPPER RESPIRATORY TRACT INFECTION
     Dosage: QUANTITY:5 TABLET(S); DAILY; ORAL?
     Route: 048
     Dates: start: 20161202, end: 20161206
  20. MINOCYCLINE [Concomitant]
     Active Substance: MINOCYCLINE\MINOCYCLINE HYDROCHLORIDE
  21. NATURAL SUPPLEMENT [Concomitant]
  22. ASPIRIN. [Concomitant]
     Active Substance: ASPIRIN
  23. C [Concomitant]
  24. PROBIOTICS [Concomitant]
     Active Substance: PROBIOTICS NOS

REACTIONS (7)
  - Musculoskeletal pain [None]
  - Dizziness [None]
  - Blood pressure increased [None]
  - Hypoaesthesia [None]
  - Neck pain [None]
  - Nausea [None]
  - Pain in extremity [None]

NARRATIVE: CASE EVENT DATE: 20161209
